FAERS Safety Report 18128830 (Version 2)
Quarter: 2020Q3

REPORT INFORMATION
  Report Type: Report from Study
  Country: HR (occurrence: HR)
  Receive Date: 20200810
  Receipt Date: 20200813
  Transmission Date: 20201104
  Serious: Yes (Hospitalization, Other)
  Sender: FDA-Public Use
  Company Number: HR-BAXTER-2020BAX016225

PATIENT
  Age: 80 Year
  Sex: Male

DRUGS (11)
  1. POLATUZUMAB VEDOTIN. [Suspect]
     Active Substance: POLATUZUMAB VEDOTIN
     Indication: NON-HODGKIN^S LYMPHOMA
     Route: 042
     Dates: start: 20191101, end: 20200326
  2. RITUXIMAB. [Suspect]
     Active Substance: RITUXIMAB
     Indication: DIFFUSE LARGE B-CELL LYMPHOMA
     Route: 042
     Dates: start: 201911, end: 202004
  3. ETOPOSIDE. [Suspect]
     Active Substance: ETOPOSIDE
     Indication: DIFFUSE LARGE B-CELL LYMPHOMA
     Route: 065
  4. RITUXIMAB. [Suspect]
     Active Substance: RITUXIMAB
     Indication: NON-HODGKIN^S LYMPHOMA
     Route: 042
     Dates: start: 20191103, end: 20200326
  5. DOXIL [Suspect]
     Active Substance: DOXORUBICIN HYDROCHLORIDE
     Indication: DIFFUSE LARGE B-CELL LYMPHOMA
     Route: 065
  6. BENDAMUSTINE [Suspect]
     Active Substance: BENDAMUSTINE
     Indication: DIFFUSE LARGE B-CELL LYMPHOMA
     Dosage: DAY 1 AND 2
     Route: 042
     Dates: start: 201911, end: 202004
  7. POLATUZUMAB VEDOTIN. [Suspect]
     Active Substance: POLATUZUMAB VEDOTIN
     Indication: DIFFUSE LARGE B-CELL LYMPHOMA
     Dosage: 140 MG (VIALS) DAY 1 OF EACH CYCLE, 110 MG IN THE 6TH CYCLE
     Route: 042
     Dates: start: 201911, end: 202004
  8. PREDNISONE. [Suspect]
     Active Substance: PREDNISONE
     Indication: DIFFUSE LARGE B-CELL LYMPHOMA
     Route: 065
  9. ENDOXAN 1000 MG PRASAK ZA OTOPINU ZA INJEKCIJU ILI INFUZIJU [Suspect]
     Active Substance: CYCLOPHOSPHAMIDE
     Indication: DIFFUSE LARGE B-CELL LYMPHOMA
     Route: 065
  10. VINCRISTINE [Suspect]
     Active Substance: VINCRISTINE
     Indication: DIFFUSE LARGE B-CELL LYMPHOMA
     Route: 065
  11. BENDAMUSTINE [Suspect]
     Active Substance: BENDAMUSTINE
     Indication: NON-HODGKIN^S LYMPHOMA
     Route: 042
     Dates: start: 20191102, end: 20200327

REACTIONS (8)
  - Metastatic malignant melanoma [Unknown]
  - Basal cell carcinoma [Recovered/Resolved]
  - Weight decreased [Unknown]
  - Squamous cell carcinoma of skin [Unknown]
  - Nodular melanoma [Unknown]
  - Nodular melanoma [Unknown]
  - Neuropathy peripheral [Unknown]
  - Neutropenia [Recovered/Resolved]

NARRATIVE: CASE EVENT DATE: 202006
